FAERS Safety Report 6988319-1 (Version None)
Quarter: 2010Q3

REPORT INFORMATION
  Report Type: 
  Country: None (occurrence: None)
  Receive Date: 20100916
  Receipt Date: 20100907
  Transmission Date: 20110219
  Serious: Yes (Hospitalization)
  Sender: FDA-Public Use
  Company Number: US-ASTRAZENECA-2010SE42027

PATIENT
  Age: 67 Year
  Sex: Female
  Weight: 69.8 kg

DRUGS (3)
  1. CRESTOR [Suspect]
     Route: 048
  2. ESTRING [Suspect]
     Indication: ATROPHIC VULVOVAGINITIS
     Route: 065
     Dates: start: 20100615
  3. PREMARIN [Suspect]
     Indication: ATROPHIC VULVOVAGINITIS
     Route: 048

REACTIONS (5)
  - BLOOD GLUCOSE INCREASED [None]
  - BREAST OPERATION [None]
  - MEMORY IMPAIRMENT [None]
  - SPEECH DISORDER [None]
  - VISION BLURRED [None]
